FAERS Safety Report 16408556 (Version 1)
Quarter: 2019Q2

REPORT INFORMATION
  Report Type: Spontaneous
  Country: US (occurrence: US)
  Receive Date: 20190502
  Receipt Date: 20190502
  Transmission Date: 20190711
  Serious: No
  Sender: FDA-Public Use
  Company Number: None

PATIENT
  Age: 69 Year
  Sex: Female

DRUGS (1)
  1. VANCOMYCIN HCL 500MG [Suspect]
     Active Substance: VANCOMYCIN HYDROCHLORIDE
     Indication: ARTHRITIS BACTERIAL
     Route: 042
     Dates: start: 20190423, end: 201904

REACTIONS (2)
  - Rash generalised [None]
  - Rash vesicular [None]

NARRATIVE: CASE EVENT DATE: 201904
